FAERS Safety Report 6432326-4 (Version None)
Quarter: 2009Q4

REPORT INFORMATION
  Report Type: 
  Country: None (occurrence: None)
  Receive Date: 20091109
  Receipt Date: 20091029
  Transmission Date: 20100525
  Serious: Yes (Hospitalization)
  Sender: FDA-Public Use
  Company Number: US-ASTRAZENECA-2009SE23268

PATIENT
  Age: 84 Year
  Sex: Male
  Weight: 96.2 kg

DRUGS (13)
  1. SYMBICORT [Suspect]
     Dosage: 160/4.5  MCG, 2 PUFFS
     Route: 055
  2. LEVOTHROID [Concomitant]
  3. PLAVIX [Concomitant]
  4. AGGRENOX [Concomitant]
  5. ISOSORBIDE [Concomitant]
  6. AMLODIPINE [Concomitant]
  7. TORSEMIDE [Concomitant]
  8. POTASSIUM CHLORIDE [Concomitant]
  9. METOLAZONE [Concomitant]
  10. SPIRONOLACTONE [Concomitant]
  11. METOPROLOL TARTRATE [Concomitant]
  12. VYTORIN [Concomitant]
  13. PANTOTRAZULI [Concomitant]

REACTIONS (3)
  - DIZZINESS [None]
  - GAIT DISTURBANCE [None]
  - PARALYSIS [None]
